FAERS Safety Report 23996136 (Version 2)
Quarter: 2024Q3

REPORT INFORMATION
  Report Type: Report from Study
  Country: US (occurrence: US)
  Receive Date: 20240620
  Receipt Date: 20240919
  Transmission Date: 20241017
  Serious: Yes (Hospitalization, Other)
  Sender: AMGEN
  Company Number: US-HORIZON THERAPEUTICS-HZN-2024-001673

PATIENT
  Age: 23 Year
  Sex: Female

DRUGS (1)
  1. RAVICTI [Suspect]
     Active Substance: GLYCEROL PHENYLBUTYRATE
     Indication: Ornithine transcarbamoylase deficiency
     Dosage: 5 MILLILITER, TID (5ML ORAL 3 TIMES A DAY)
     Route: 048
     Dates: start: 201707

REACTIONS (10)
  - Foetal heart rate increased [Unknown]
  - Kidney infection [Unknown]
  - Haemorrhage in pregnancy [Recovered/Resolved]
  - Hyperammonaemia [Unknown]
  - Heart rate increased [Unknown]
  - High risk pregnancy [Unknown]
  - Weight decreased [Unknown]
  - Nausea [Not Recovered/Not Resolved]
  - Exposure during pregnancy [Unknown]
  - Pain [Unknown]
